FAERS Safety Report 7331233-2 (Version None)
Quarter: 2011Q1

REPORT INFORMATION
  Report Type: 
  Country: None (occurrence: None)
  Receive Date: 20110304
  Receipt Date: 20110228
  Transmission Date: 20110831
  Serious: Yes (Other)
  Sender: FDA-Public Use
  Company Number: US-PFIZER INC-2010134609

PATIENT
  Sex: Female
  Weight: 90.703 kg

DRUGS (2)
  1. TOVIAZ [Suspect]
     Indication: BLADDER DISORDER
     Dosage: 8 MG, 1X/DAY
     Route: 048
     Dates: start: 20100901
  2. TOVIAZ [Suspect]
     Indication: MICTURITION DISORDER

REACTIONS (5)
  - GASTROOESOPHAGEAL REFLUX DISEASE [None]
  - NAUSEA [None]
  - MALAISE [None]
  - CHEST DISCOMFORT [None]
  - DYSPEPSIA [None]
